FAERS Safety Report 7006164-8 (Version None)
Quarter: 2010Q3

REPORT INFORMATION
  Report Type: 
  Country: None (occurrence: None)
  Receive Date: 20100921
  Receipt Date: 20100910
  Transmission Date: 20110219
  Serious: Yes (Other)
  Sender: FDA-Public Use
  Company Number: PT-PFIZER INC-2010004119

PATIENT
  Age: 55 Year
  Sex: Male
  Weight: 109 kg

DRUGS (1)
  1. SUTENT [Suspect]
     Indication: THYROID CANCER
     Dosage: 50 MG, 28 DAYS ON / 14 DAYS OFF
     Route: 048
     Dates: start: 20090217

REACTIONS (1)
  - HYPERTRIGLYCERIDAEMIA [None]
